FAERS Safety Report 8010437-X (Version None)
Quarter: 2011Q4

REPORT INFORMATION
  Report Type: 
  Country: None (occurrence: None)
  Receive Date: 20111222
  Receipt Date: 20111214
  Transmission Date: 20120403
  Serious: Yes (Death)
  Sender: FDA-Public Use
  Company Number: ADR-2011-11317

PATIENT

DRUGS (4)
  1. DILAUDID [Concomitant]
  2. LIORESAL [Suspect]
     Indication: MUSCLE SPASTICITY
     Dosage: DAILY, INTRATH
     Route: 037
  3. BUPIVACAINE HCL [Concomitant]
  4. CLONIDINE [Concomitant]

REACTIONS (2)
  - PRE-EXISTING DISEASE [None]
  - CONDITION AGGRAVATED [None]
